FAERS Safety Report 7490553-1 (Version None)
Quarter: 2011Q2

REPORT INFORMATION
  Report Type: 
  Country: None (occurrence: None)
  Receive Date: 20110519
  Receipt Date: 20110516
  Transmission Date: 20111010
  Serious: Yes (Other)
  Sender: FDA-Public Use
  Company Number: US-PFIZER INC-2011105776

PATIENT
  Sex: Male
  Weight: 104 kg

DRUGS (1)
  1. LIPITOR [Suspect]
     Indication: BLOOD CHOLESTEROL INCREASED
     Dosage: 40 MG, DAILY
     Route: 048
     Dates: end: 20110101

REACTIONS (10)
  - MUSCLE DISORDER [None]
  - DYSPNOEA [None]
  - MUSCULOSKELETAL PAIN [None]
  - PRESYNCOPE [None]
  - NECK PAIN [None]
  - VISION BLURRED [None]
  - WEIGHT INCREASED [None]
  - SLUGGISHNESS [None]
  - ASTHENIA [None]
  - FALL [None]
